FAERS Safety Report 10898922 (Version 2)
Quarter: 2015Q4

REPORT INFORMATION
  Report Type: Spontaneous
  Country: US (occurrence: US)
  Receive Date: 20150309
  Receipt Date: 20151030
  Transmission Date: 20160304
  Serious: No
  Sender: FDA-Public Use
  Company Number: US-ASTRAZENECA-2015SE18933

PATIENT
  Age: 793 Month
  Sex: Male
  Weight: 78 kg

DRUGS (2)
  1. TUDORZA PRESSAIR [Suspect]
     Active Substance: ACLIDINIUM BROMIDE
     Indication: CHRONIC OBSTRUCTIVE PULMONARY DISEASE
     Route: 055
     Dates: start: 201409
  2. SYMBICORT [Suspect]
     Active Substance: BUDESONIDE\FORMOTEROL FUMARATE DIHYDRATE
     Indication: CHRONIC OBSTRUCTIVE PULMONARY DISEASE
     Dosage: 160/4.5 MCG 1 PUFF IN THE MORNING AND 1 PUFF AT NIGHT
     Route: 055
     Dates: start: 201409

REACTIONS (3)
  - Arthralgia [Unknown]
  - Expired product administered [Unknown]
  - Back pain [Unknown]

NARRATIVE: CASE EVENT DATE: 201510
